FAERS Safety Report 4995647-8 (Version None)
Quarter: 2006Q2

REPORT INFORMATION
  Report Type: 
  Country: None (occurrence: None)
  Receive Date: 20060504
  Receipt Date: 20060421
  Transmission Date: 20061013
  Serious: Yes (Death, Other)
  Sender: FDA-Public Use
  Company Number: 2006008228

PATIENT
  Age: 60 Year
  Sex: Male
  Weight: 99.7913 kg

DRUGS (7)
  1. VIAGRA [Suspect]
     Indication: ERECTILE DYSFUNCTION
     Dosage: 100 MG (100 MG), ORAL
     Route: 048
     Dates: start: 20051125
  2. ATENOLOL [Concomitant]
  3. ADALAT CC [Concomitant]
  4. LISINOPRIL [Concomitant]
  5. DIPYRIDAMOLE [Concomitant]
  6. LOVASTATIN [Concomitant]
  7. TERAZOSIN (TERAZOSIN) [Concomitant]

REACTIONS (6)
  - CARDIAC ARREST [None]
  - CARDIAC DISORDER [None]
  - DRUG INEFFECTIVE [None]
  - NASOPHARYNGEAL DISORDER [None]
  - PERICARDIAL EFFUSION [None]
  - STENT PLACEMENT [None]
